FAERS Safety Report 12083307 (Version 1)
Quarter: 2016Q1

REPORT INFORMATION
  Report Type: Spontaneous
  Country: US (occurrence: None)
  Receive Date: 20160216
  Receipt Date: 20160216
  Transmission Date: 20160526
  Serious: Yes (Hospitalization)
  Sender: FDA-Public Use
  Company Number: None

PATIENT
  Age: 50 Year
  Sex: Female
  Weight: 94.3 kg

DRUGS (23)
  1. RIBAVIRIN 200MG [Suspect]
     Active Substance: RIBAVIRIN
     Indication: HEPATITIS C
     Route: 048
     Dates: start: 20150813, end: 20151105
  2. VIEKIRA PAK [Suspect]
     Active Substance: DASABUVIR\OMBITASVIR\PARITAPREVIR\RITONAVIR
     Indication: HEPATITIS C
     Dosage: 12.5/75/50/250MG BID ORAL
     Route: 048
     Dates: start: 20150813, end: 20151105
  3. FLUTICASONE [Concomitant]
     Active Substance: FLUTICASONE\FLUTICASONE PROPIONATE
  4. ANTIVERT [Concomitant]
     Active Substance: MECLIZINE HYDROCHLORIDE
  5. SODIUM CHLORIDE. [Concomitant]
     Active Substance: SODIUM CHLORIDE
  6. ALBUTEROL. [Concomitant]
     Active Substance: ALBUTEROL
  7. COLACE [Concomitant]
     Active Substance: DOCUSATE SODIUM
  8. INSULIN ASPART [Concomitant]
     Active Substance: INSULIN ASPART
  9. RIFAXIMIN [Concomitant]
     Active Substance: RIFAXIMIN
  10. PROTONIX [Concomitant]
     Active Substance: PANTOPRAZOLE SODIUM
  11. FERROUS SULFATE [Concomitant]
     Active Substance: FERROUS SULFATE\FERROUS SULFATE, DRIED
  12. NIZORAL [Concomitant]
     Active Substance: KETOCONAZOLE
  13. COZAAR [Concomitant]
     Active Substance: LOSARTAN POTASSIUM
  14. SINGULAIR [Concomitant]
     Active Substance: MONTELUKAST SODIUM
  15. PERCOCET [Concomitant]
     Active Substance: ACETAMINOPHEN\OXYCODONE HYDROCHLORIDE
  16. INDERAL [Concomitant]
     Active Substance: PROPRANOLOL HYDROCHLORIDE
  17. CULTURELLE [Concomitant]
     Active Substance: LACTOBACILLUS RHAMNOSUS
  18. IMITREX [Concomitant]
     Active Substance: SUMATRIPTAN SUCCINATE
  19. INSULIN GLARGINE [Concomitant]
     Active Substance: INSULIN GLARGINE
  20. ZOFRAN [Concomitant]
     Active Substance: ONDANSETRON HYDROCHLORIDE
  21. ROXICODONE [Concomitant]
     Active Substance: OXYCODONE HYDROCHLORIDE
  22. MYCOLOG [Concomitant]
     Active Substance: GRAMICIDIN\NEOMYCIN SULFATE\NYSTATIN\TRIAMCINOLONE ACETONIDE
  23. GABAPENTIN. [Concomitant]
     Active Substance: GABAPENTIN

REACTIONS (9)
  - Dysuria [None]
  - Dizziness [None]
  - Nausea [None]
  - Vaginal haemorrhage [None]
  - Uterine leiomyoma [None]
  - Headache [None]
  - Hyperglycaemia [None]
  - Vulvovaginal pruritus [None]
  - Pancytopenia [None]

NARRATIVE: CASE EVENT DATE: 20151016
